FAERS Safety Report 19900718 (Version 1)
Quarter: 2021Q3

REPORT INFORMATION
  Report Type: Spontaneous
  Country: CH (occurrence: CH)
  Receive Date: 20210930
  Receipt Date: 20210930
  Transmission Date: 20211014
  Serious: Yes (Life-Threatening, Hospitalization, Other)
  Sender: FDA-Public Use
  Company Number: CH-MYLANLABS-2021M1066106

PATIENT
  Age: 21 Year
  Sex: Female

DRUGS (8)
  1. DOMPERIDONE [Concomitant]
     Active Substance: DOMPERIDONE
     Dosage: UNK
     Route: 048
  2. NOVALGIN                           /00169801/ [Suspect]
     Active Substance: ACETAMINOPHEN\CAFFEINE\PROPYPHENAZONE
     Indication: PRODUCT USED FOR UNKNOWN INDICATION
     Dosage: 500 MILLIGRAM, PRN
     Route: 048
     Dates: start: 20210801, end: 20210811
  3. GUARANA                            /01333101/ [Concomitant]
     Active Substance: HERBALS\PAULLINIA CUPANA SEED
     Dosage: UNK
  4. AUBEPINE [Concomitant]
     Dosage: UNK
  5. MODERNA COVID?19 VACCINE [Suspect]
     Active Substance: CX-024414
     Indication: PRODUCT USED FOR UNKNOWN INDICATION
     Dosage: 100 MICROGRAM
     Route: 030
     Dates: start: 20210609
  6. BRUFEN 400 MG [Suspect]
     Active Substance: IBUPROFEN
     Indication: PRODUCT USED FOR UNKNOWN INDICATION
     Dosage: 400 MILLIGRAM, PRN
     Route: 048
     Dates: start: 20210801, end: 20210806
  7. MODERNA COVID?19 VACCINE [Suspect]
     Active Substance: CX-024414
     Dosage: 100 MICROGRAM
     Route: 030
     Dates: start: 20210709
  8. BELARINA [Concomitant]
     Dosage: UNK
     Route: 048
     Dates: start: 20180701

REACTIONS (1)
  - Liver disorder [Recovering/Resolving]

NARRATIVE: CASE EVENT DATE: 20210801
